FAERS Safety Report 4980453-0 (Version None)
Quarter: 2006Q2

REPORT INFORMATION
  Report Type: 
  Country: None (occurrence: None)
  Receive Date: 20060421
  Receipt Date: 20060420
  Transmission Date: 20061013
  Serious: Yes (Death)
  Sender: FDA-Public Use
  Company Number: DL2006128

PATIENT
  Age: 23 Year
  Sex: Female

DRUGS (2)
  1. MIFEPRISTONE TABLETS, 200 MG (DANCO LABS) [Suspect]
     Indication: ABORTION INDUCED
     Dosage: 200 MG, ORAL
     Route: 048
     Dates: start: 20060109
  2. MIFEPRISTONE TABLETS, 200 MCG [Suspect]
     Dosage: 800 MCG, VAGINAL
     Route: 067
     Dates: start: 20060109

REACTIONS (4)
  - CHILLS [None]
  - OVERDOSE [None]
  - PYREXIA [None]
  - TREATMENT NONCOMPLIANCE [None]
